FAERS Safety Report 10235418 (Version 1)
Quarter: 2014Q2

REPORT INFORMATION
  Report Type: Spontaneous
  Country: BR (occurrence: None)
  Receive Date: 20140611
  Receipt Date: 20140611
  Transmission Date: 20141212
  Serious: Yes (Other)
  Sender: FDA-Public Use
  Company Number: SYM-2014-21753

PATIENT
  Sex: Female

DRUGS (1)
  1. FLAGYL (METRONIDAZOLE) (250 MILLIGRAM, TABLET) (METRONIDAZOLE) [Suspect]
     Indication: PRODUCT USED FOR UNKNOWN INDICATION
     Route: 048

REACTIONS (3)
  - Syncope [None]
  - Fall [None]
  - Malaise [None]
